FAERS Safety Report 21772884 (Version 1)
Quarter: 2022Q4

REPORT INFORMATION
  Report Type: Spontaneous
  Country: IT (occurrence: IT)
  Receive Date: 20221223
  Receipt Date: 20221223
  Transmission Date: 20230112
  Serious: Yes (Life-Threatening, Other)
  Sender: FDA-Public Use
  Company Number: None

PATIENT
  Age: 80 Year
  Sex: Female
  Weight: 51 kg

DRUGS (3)
  1. CARBOPLATIN [Suspect]
     Active Substance: CARBOPLATIN
     Indication: Lung neoplasm malignant
     Dosage: UNIT DOSE: 183.38 MG, DURATION : 98 DAYS
     Route: 065
     Dates: start: 20220802, end: 20221108
  2. PEMETREXED [Suspect]
     Active Substance: PEMETREXED
     Indication: Lung neoplasm malignant
     Dosage: UNIT DOSE: 441 MG, DURATION : 98 DAYS
     Route: 065
     Dates: start: 20220802, end: 20221108
  3. KEYTRUDA [Suspect]
     Active Substance: PEMBROLIZUMAB
     Indication: Lung neoplasm malignant
     Dosage: UNIT DOSE: 200 MG, DURATION : 98 DAYS
     Route: 065
     Dates: start: 20220802, end: 20221108

REACTIONS (3)
  - Hyperpyrexia [Unknown]
  - Hypothyroidism [Unknown]
  - Glucocorticoid deficiency [Unknown]

NARRATIVE: CASE EVENT DATE: 20221026
